FAERS Safety Report 8540683 (Version 39)
Quarter: 2019Q3

REPORT INFORMATION
  Report Type: Report from Study
  Country: CA (occurrence: CA)
  Receive Date: 20120502
  Receipt Date: 20190829
  Transmission Date: 20191005
  Serious: Yes (Other)
  Sender: FDA-Public Use
  Company Number: PHHY2012CA036326

PATIENT
  Age: 58 Year
  Sex: Male

DRUGS (5)
  1. SANDOSTATIN LAR DEPOT [Suspect]
     Active Substance: OCTREOTIDE ACETATE
     Indication: CARCINOID TUMOUR
     Dosage: 20 MG, QMO (EVERY 4 WEEKS)
     Route: 030
     Dates: start: 20111108
  2. LUTETIUM (LU 177) [Concomitant]
     Active Substance: LUTETIUM LU-177
     Indication: CARCINOID TUMOUR
     Dosage: UNK
     Route: 065
     Dates: start: 20150520
  3. SANDOSTATIN LAR DEPOT [Suspect]
     Active Substance: OCTREOTIDE ACETATE
     Dosage: 30 MG, QMO  (EVERY 4 WEEKS)
     Route: 030
     Dates: start: 2012
  4. MIBG (L123) [Concomitant]
     Indication: CARCINOID TUMOUR
     Dosage: UNK
     Route: 065
  5. TYLENOL [Concomitant]
     Active Substance: ACETAMINOPHEN
     Indication: PRODUCT USED FOR UNKNOWN INDICATION
     Dosage: UNK
     Route: 065

REACTIONS (30)
  - Peripheral coldness [Unknown]
  - Functional gastrointestinal disorder [Unknown]
  - Myalgia [Not Recovered/Not Resolved]
  - Inguinal hernia [Unknown]
  - Swelling [Unknown]
  - Frequent bowel movements [Unknown]
  - Hypoaesthesia [Unknown]
  - Abdominal discomfort [Unknown]
  - Nausea [Unknown]
  - Gastroenteritis viral [Recovered/Resolved]
  - Blood pressure increased [Unknown]
  - Depression [Unknown]
  - Panic attack [Unknown]
  - Gout [Unknown]
  - Groin pain [Unknown]
  - Back injury [Unknown]
  - Muscle strain [Recovering/Resolving]
  - Stress [Unknown]
  - Needle issue [Unknown]
  - Diarrhoea [Recovered/Resolved]
  - Abdominal distension [Unknown]
  - Body temperature decreased [Unknown]
  - Abdominal pain upper [Recovered/Resolved]
  - Metastases to liver [Unknown]
  - Malignant neoplasm progression [Unknown]
  - Muscle spasms [Not Recovered/Not Resolved]
  - Flushing [Unknown]
  - Memory impairment [Unknown]
  - Abdominal pain lower [Recovered/Resolved]
  - Anxiety [Unknown]

NARRATIVE: CASE EVENT DATE: 20121027
